FAERS Safety Report 9109485 (Version 1)
Quarter: 2013Q1

REPORT INFORMATION
  Report Type: Spontaneous
  Country: US (occurrence: US)
  Receive Date: 20130222
  Receipt Date: 20130222
  Transmission Date: 20140127
  Serious: Yes (Hospitalization, Other)
  Sender: FDA-Public Use
  Company Number: US-B.I. PHARMACEUTICALS,INC./RIDGEFIELD-2013-BI-04080BP

PATIENT
  Age: 80 None
  Sex: Male
  Weight: 91 kg

DRUGS (7)
  1. PRADAXA [Suspect]
     Indication: ATRIAL FIBRILLATION
     Dosage: 150 MG
     Route: 048
     Dates: start: 20121129
  2. PRADAXA [Suspect]
     Dosage: 150 MG
     Route: 048
     Dates: start: 201203, end: 20121109
  3. FUROSEMIDE [Concomitant]
     Indication: SWELLING
     Dosage: 40 MG
     Route: 048
     Dates: start: 20130201
  4. SIMVASTATIN [Concomitant]
     Indication: BLOOD CHOLESTEROL INCREASED
     Dosage: 20 MG
     Route: 048
     Dates: start: 2011
  5. ASPIRIN [Concomitant]
     Indication: CARDIAC DISORDER
     Dosage: 81 MG
     Route: 048
     Dates: start: 20121128
  6. METOPROLOL [Concomitant]
     Indication: HYPERTENSION
     Dosage: 25 MG
     Route: 048
     Dates: start: 2010
  7. DIGOXIN [Concomitant]
     Indication: CARDIAC DISORDER
     Dosage: 250 MCG
     Route: 048
     Dates: start: 201206

REACTIONS (5)
  - Cerebral venous thrombosis [Recovered/Resolved]
  - Cerebrovascular accident [Recovered/Resolved]
  - Hemiplegia [Recovered/Resolved]
  - Dysphagia [Unknown]
  - Muscular weakness [Not Recovered/Not Resolved]
